FAERS Safety Report 4323368-3 (Version None)
Quarter: 2004Q1

REPORT INFORMATION
  Report Type: 
  Country: None (occurrence: None)
  Receive Date: 20040324
  Receipt Date: 20040324
  Transmission Date: 20041129
  Serious: No
  Sender: FDA-Public Use
  Company Number: None

PATIENT
  Sex: Male
  Weight: 81.6475 kg

DRUGS (2)
  1. ATAZANAVIR 400 MG Q DAY [Suspect]
     Indication: ACQUIRED IMMUNODEFICIENCY SYNDROME
     Dates: start: 20040109, end: 20040305
  2. RISPERIDONE [Concomitant]

REACTIONS (1)
  - BLOOD BILIRUBIN INCREASED [None]
